FAERS Safety Report 11229399 (Version 1)
Quarter: 2015Q2

REPORT INFORMATION
  Report Type: Report from Study
  Country: BR (occurrence: BR)
  Receive Date: 20150630
  Receipt Date: 20150630
  Transmission Date: 20150821
  Serious: Yes (Death)
  Sender: FDA-Public Use
  Company Number: PHHY2015BR078353

PATIENT
  Sex: Female
  Weight: 50 kg

DRUGS (2)
  1. EXELON PATCH [Suspect]
     Active Substance: RIVASTIGMINE
     Indication: AGITATION
  2. EXELON PATCH [Suspect]
     Active Substance: RIVASTIGMINE
     Indication: NERVOUS SYSTEM DISORDER
     Dosage: 1 DF, QD (9.5MG/10CM)
     Route: 065

REACTIONS (2)
  - Off label use [Unknown]
  - Death [Fatal]
